FAERS Safety Report 8255343-0 (Version None)
Quarter: 2012Q1

REPORT INFORMATION
  Report Type: 
  Country: None (occurrence: None)
  Receive Date: 20120330
  Receipt Date: 20120312
  Transmission Date: 20120608
  Serious: Yes (Other)
  Sender: FDA-Public Use
  Company Number: HA12-074-AE

PATIENT
  Age: 60 Year
  Sex: Female
  Weight: 91.6266 kg

DRUGS (7)
  1. SYNTHROID [Concomitant]
  2. PRILOSEC [Concomitant]
  3. SULFAMETHOXAZOLE AND TRIMETHOPRIM [Suspect]
     Indication: URINARY TRACT INFECTION
     Dosage: 1 TABLET, BID, ORAL
     Route: 048
     Dates: start: 20120224, end: 20120224
  4. NEURONTIN [Concomitant]
  5. AGRRENOX [Concomitant]
  6. POTASSIUM CITRATE [Concomitant]
  7. LEXAPRO [Concomitant]

REACTIONS (9)
  - DEHYDRATION [None]
  - PRODUCT SUBSTITUTION ISSUE [None]
  - DIZZINESS [None]
  - PRURITUS [None]
  - URTICARIA [None]
  - VOMITING [None]
  - DRUG HYPERSENSITIVITY [None]
  - NAUSEA [None]
  - BLOOD PRESSURE DECREASED [None]
